FAERS Safety Report 4435281-1 (Version None)
Quarter: 2004Q3

REPORT INFORMATION
  Report Type: 
  Country: None (occurrence: None)
  Receive Date: 20040826
  Receipt Date: 20040813
  Transmission Date: 20050211
  Serious: Yes (Hospitalization)
  Sender: FDA-Public Use
  Company Number: 2004-00465FE

PATIENT
  Age: 67 Year
  Sex: Male

DRUGS (1)
  1. PENTASA [Suspect]
     Indication: COLITIS ULCERATIVE
     Dosage: 1500 MG, ORALLY
     Route: 048
     Dates: start: 20040310, end: 20040702

REACTIONS (2)
  - INTERSTITIAL LUNG DISEASE [None]
  - PNEUMONIA [None]
